FAERS Safety Report 7600121-6 (Version None)
Quarter: 2011Q3

REPORT INFORMATION
  Report Type: 
  Country: None (occurrence: None)
  Receive Date: 20110711
  Receipt Date: 20110628
  Transmission Date: 20111222
  Serious: Yes (Hospitalization)
  Sender: FDA-Public Use
  Company Number: ES-ELI_LILLY_AND_COMPANY-ES201106008349

PATIENT
  Sex: Female
  Weight: 57 kg

DRUGS (17)
  1. ESERTIA [Concomitant]
     Dosage: 5 MG, QD
     Route: 048
  2. ADOLONTA [Concomitant]
     Indication: ANALGESIC THERAPY
     Dosage: 100 MG, TID
     Route: 048
  3. TIMOFTOL [Concomitant]
     Indication: EYE DISORDER
     Dosage: UNK, QD
     Route: 047
  4. EXELON [Concomitant]
     Dosage: 6 MG, UNKNOWN
     Route: 048
  5. LYRICA [Concomitant]
     Indication: NEURALGIA
     Dosage: 150 MG, QD
     Route: 048
  6. FORTEO [Suspect]
     Indication: OSTEOPOROSIS
     Dosage: 20 UG, QD
     Route: 058
     Dates: start: 20100416
  7. ACETAMINOPHEN [Concomitant]
     Indication: ANALGESIC THERAPY
     Dosage: 3 G, QD
     Route: 048
  8. ATACAND [Concomitant]
     Indication: HYPERTENSION
     Dosage: 32 MG, QD
     Route: 048
  9. LANTUS [Concomitant]
     Indication: DIABETES MELLITUS
     Dosage: 8 IU, QD
     Route: 058
  10. NORVASC [Concomitant]
     Indication: HYPERTENSION
     Dosage: UNK UNK, UNKNOWN
     Route: 048
  11. ASPIRIN [Concomitant]
     Dosage: 100 MG, QD
     Route: 048
  12. MIRTAZAPINA [Concomitant]
     Dosage: 15 MG, QD
     Route: 048
  13. HYDROCHLOROTHIAZIDE [Concomitant]
     Indication: HYPERTENSION
     Dosage: 25 MG, QD
     Route: 048
  14. FUROSEMIDE [Concomitant]
     Dosage: 40 MG, QD
     Route: 048
  15. BOI K [Concomitant]
     Dosage: UNK, QD
     Route: 048
  16. PANTOPRAZOLE [Concomitant]
     Indication: PROPHYLAXIS
     Dosage: 40 MG, QD
     Route: 048
  17. BISOPROLOL FUMARATE [Concomitant]
     Indication: HYPERTENSION
     Dosage: 5 MG, QD
     Route: 048

REACTIONS (3)
  - URINE OUTPUT DECREASED [None]
  - HYPOGLYCAEMIA [None]
  - URINARY TRACT INFECTION [None]
